FAERS Safety Report 9893561 (Version 1)
Quarter: 2014Q1

REPORT INFORMATION
  Report Type: Spontaneous
  Country: IT (occurrence: IT)
  Receive Date: 20140213
  Receipt Date: 20140213
  Transmission Date: 20141002
  Serious: Yes (Other)
  Sender: FDA-Public Use
  Company Number: IT-MYLANLABS-2014S1002513

PATIENT
  Age: 76 Year
  Sex: Female
  Weight: 0 kg

DRUGS (3)
  1. AZITHROMYCIN DIHYDRATE [Suspect]
     Indication: TONSILLITIS
     Dosage: 500 MG DAILY
     Route: 048
     Dates: start: 20131111, end: 20131113
  2. AMOXICILLIN TRIHYDRATE [Suspect]
     Indication: TONSILLITIS
     Dosage: 2 G DAILY
     Route: 048
     Dates: start: 20131105, end: 20131110
  3. COUMADIN [Suspect]
     Indication: DEEP VEIN THROMBOSIS
     Dosage: 10 MG WEEKLY
     Route: 048
     Dates: start: 20110520, end: 20140129

REACTIONS (1)
  - International normalised ratio increased [Recovered/Resolved]
